FAERS Safety Report 18392771 (Version 1)
Quarter: 2020Q4

REPORT INFORMATION
  Report Type: Spontaneous
  Country: US (occurrence: US)
  Receive Date: 20201016
  Receipt Date: 20201016
  Transmission Date: 20210114
  Serious: Yes (Other)
  Sender: FDA-Public Use
  Company Number: US-APOTEX-2020AP019698

PATIENT
  Age: 20 Year
  Sex: Male

DRUGS (3)
  1. ATOMOXETINE CAPSULES USP [Suspect]
     Active Substance: ATOMOXETINE
     Dosage: 2 DOSAGE FORM, QD
     Route: 048
     Dates: end: 202009
  2. CELEXA [CELECOXIB] [Concomitant]
     Active Substance: CELECOXIB
     Indication: DEPRESSION
     Dosage: UNK
     Route: 065
  3. ATOMOXETINE CAPSULES USP [Suspect]
     Active Substance: ATOMOXETINE
     Indication: ATTENTION DEFICIT HYPERACTIVITY DISORDER
     Dosage: 1 DOSAGE FORM, QD
     Route: 048
     Dates: start: 202009

REACTIONS (4)
  - Feeling abnormal [Unknown]
  - Joint dislocation [Recovered/Resolved]
  - Hypophagia [Unknown]
  - Sleep disorder [Unknown]

NARRATIVE: CASE EVENT DATE: 20200929
